FAERS Safety Report 6418112-X (Version None)
Quarter: 2009Q4

REPORT INFORMATION
  Report Type: 
  Country: None (occurrence: None)
  Receive Date: 20091028
  Receipt Date: 20091022
  Transmission Date: 20100525
  Serious: Yes (Other)
  Sender: FDA-Public Use
  Company Number: BR-PFIZER INC-2009271573

PATIENT
  Age: 50 Year

DRUGS (3)
  1. CELEBRA [Suspect]
     Indication: NEURITIS
     Dosage: UNK
     Route: 048
     Dates: start: 20090713, end: 20090701
  2. DICLOFENAC SODIUM [Concomitant]
     Dosage: UNK
     Dates: start: 20090501
  3. CYCLOBENZAPRINE [Concomitant]
     Dosage: UNK
     Dates: start: 20090501

REACTIONS (7)
  - BLOOD CHOLESTEROL INCREASED [None]
  - FACE OEDEMA [None]
  - LIP SWELLING [None]
  - PARAESTHESIA [None]
  - PARAESTHESIA ORAL [None]
  - PRURITUS [None]
  - SWELLING [None]
